FAERS Safety Report 23941672 (Version 1)
Quarter: 2024Q2

REPORT INFORMATION
  Report Type: Spontaneous
  Country: US (occurrence: None)
  Receive Date: 20240605
  Receipt Date: 20240605
  Transmission Date: 20240716
  Serious: Yes (Other)
  Sender: FDA-Public Use
  Company Number: 2024A128191

PATIENT
  Sex: Female

DRUGS (2)
  1. BREZTRI [Suspect]
     Active Substance: BUDESONIDE\FORMOTEROL\GLYCOPYRROLATE
     Indication: Chronic obstructive pulmonary disease
     Dosage: 160/9/4.5MCG
     Route: 055
  2. FOSAMAX [Suspect]
     Active Substance: ALENDRONATE SODIUM

REACTIONS (4)
  - Pain [Unknown]
  - Bone density decreased [Unknown]
  - Myalgia [Unknown]
  - Loss of personal independence in daily activities [Unknown]
